FAERS Safety Report 18958359 (Version 1)
Quarter: 2021Q1

REPORT INFORMATION
  Report Type: Spontaneous
  Country: TN (occurrence: TN)
  Receive Date: 20210302
  Receipt Date: 20210302
  Transmission Date: 20210420
  Serious: Yes (Other)
  Sender: FDA-Public Use
  Company Number: TN-CELLTRION-2021-TN-000004

PATIENT
  Age: 52 Year
  Sex: Female

DRUGS (1)
  1. CLOPIDOGREL [Suspect]
     Active Substance: CLOPIDOGREL BISULFATE
     Indication: WRONG DRUG
     Route: 065

REACTIONS (1)
  - Systemic lupus erythematosus [Unknown]
